FAERS Safety Report 7237216-5 (Version None)
Quarter: 2011Q1

REPORT INFORMATION
  Report Type: 
  Country: None (occurrence: None)
  Receive Date: 20110121
  Receipt Date: 20110110
  Transmission Date: 20110831
  Serious: Yes (Other)
  Sender: FDA-Public Use
  Company Number: FR-PFIZER INC-2011005849

PATIENT
  Age: 78 Year
  Sex: Female

DRUGS (7)
  1. LYRICA [Suspect]
     Dosage: 100 MG, 2X/DAY
     Route: 048
     Dates: start: 20100101
  2. XANAX [Suspect]
  3. ACETAMINOPHEN W/ PROPOXYPHENE HCL [Suspect]
  4. EFFEXOR [Suspect]
  5. ALDACTAZINE [Suspect]
  6. EUPANTOL [Suspect]
  7. ACUPAN [Suspect]
     Dosage: UNK
     Route: 048
     Dates: start: 20100301

REACTIONS (3)
  - CHOLESTASIS [None]
  - CONFUSIONAL STATE [None]
  - FALL [None]
